FAERS Safety Report 21378420 (Version 1)
Quarter: 2022Q3

REPORT INFORMATION
  Report Type: Spontaneous
  Country: FR (occurrence: FR)
  Receive Date: 20220927
  Receipt Date: 20220927
  Transmission Date: 20221027
  Serious: Yes (Life-Threatening)
  Sender: FDA-Public Use
  Company Number: FR-AFSSAPS-BS20200037

PATIENT
  Age: 56 Year
  Sex: Female
  Weight: 91 kg

DRUGS (7)
  1. MORPHINE [Suspect]
     Active Substance: MORPHINE
     Indication: Analgesic therapy
     Dosage: 6 MILLIGRAM, IN TOTAL
     Route: 065
     Dates: start: 20200114, end: 20200114
  2. KETAMINE [Suspect]
     Active Substance: KETAMINE
     Indication: Anaesthesia
     Dosage: 55 MILLIGRAM, DAILY
     Route: 065
     Dates: start: 20200114, end: 20200114
  3. PROPOFOL LIPURO [Suspect]
     Active Substance: PROPOFOL
     Indication: Anaesthesia
     Dosage: 1 DOSAGE FORM, DAILY
     Route: 065
     Dates: start: 20200114, end: 20200114
  4. TRAMADOL HYDROCHLORIDE [Interacting]
     Active Substance: TRAMADOL HYDROCHLORIDE
     Indication: Procedural pain
     Dosage: 100 MILLIGRAM, IN TOTAL
     Route: 065
     Dates: start: 20200114, end: 20200114
  5. LINEZOLID [Interacting]
     Active Substance: LINEZOLID
     Indication: Device related infection
     Dosage: 1200 MILLIGRAM, DAILY
     Route: 065
     Dates: start: 20200114
  6. REMIFENTANIL [Suspect]
     Active Substance: REMIFENTANIL
     Indication: Analgesic therapy
     Dosage: 1.05 MILLIGRAM, DAILY
     Route: 065
     Dates: start: 20200114, end: 20200114
  7. NEFOPAM HYDROCHLORIDE [Suspect]
     Active Substance: NEFOPAM HYDROCHLORIDE
     Indication: Analgesic therapy
     Dosage: 20 MILLIGRAM, IN TOTAL
     Route: 065
     Dates: start: 20200114, end: 20200114

REACTIONS (1)
  - Coma [Recovered/Resolved with Sequelae]

NARRATIVE: CASE EVENT DATE: 20200114
